FAERS Safety Report 23787939 (Version 1)
Quarter: 2024Q2

REPORT INFORMATION
  Report Type: Spontaneous
  Country: US (occurrence: US)
  Receive Date: 20240426
  Receipt Date: 20240426
  Transmission Date: 20240716
  Serious: No
  Sender: FDA-Public Use
  Company Number: US-002147023-NVSC2024US087033

PATIENT
  Age: 80 Year
  Sex: Female
  Weight: 86 kg

DRUGS (1)
  1. KISQALI [Suspect]
     Active Substance: RIBOCICLIB
     Indication: Breast cancer
     Dosage: 400 MG, QD (FOR 21 DAYS OF 28 DAY CYCLE)
     Route: 048
     Dates: start: 20220921

REACTIONS (3)
  - Urinary tract infection [Unknown]
  - Vulvovaginal discomfort [Unknown]
  - Chromaturia [Unknown]

NARRATIVE: CASE EVENT DATE: 20240401
